FAERS Safety Report 14779594 (Version 1)
Quarter: 2018Q2

REPORT INFORMATION
  Report Type: Spontaneous
  Country: US (occurrence: US)
  Receive Date: 20180412
  Receipt Date: 20180412
  Transmission Date: 20180711
  Serious: No
  Sender: FDA-Public Use
  Company Number: None

PATIENT
  Age: 76 Year
  Sex: Female

DRUGS (2)
  1. IBRANCE [Suspect]
     Active Substance: PALBOCICLIB
     Indication: BREAST CANCER FEMALE
     Dosage: OTHER FREQUENCY:DAILY FOR 21 DAYS OFF AND 28 DAY CYCLE?
     Route: 048
     Dates: start: 20171115, end: 20180404
  2. IBRANCE [Suspect]
     Active Substance: PALBOCICLIB
     Indication: NEOPLASM MALIGNANT

REACTIONS (2)
  - Spinal disorder [None]
  - Positron emission tomogram abnormal [None]

NARRATIVE: CASE EVENT DATE: 20180404
